FAERS Safety Report 6300058-9 (Version None)
Quarter: 2009Q3

REPORT INFORMATION
  Report Type: 
  Country: None (occurrence: None)
  Receive Date: 20090806
  Receipt Date: 20090728
  Transmission Date: 20100115
  Serious: Yes (Other)
  Sender: FDA-Public Use
  Company Number: US-ELI_LILLY_AND_COMPANY-US200907006493

PATIENT
  Sex: Female

DRUGS (10)
  1. CYMBALTA [Suspect]
     Indication: DEPRESSION
     Dosage: 60 MG, 2/D
     Route: 048
  2. FORTEO [Suspect]
     Indication: OSTEOPOROSIS
     Dates: start: 20080401
  3. PLAQUENIL [Concomitant]
     Dosage: 200 MG, 2/D
  4. MORPHINE [Concomitant]
     Dosage: 15 MG, 2/D
  5. LYRICA [Concomitant]
     Dosage: 100 MG, 3/D
  6. DICLOFEN [Concomitant]
     Dosage: 50 MG, 3/D
  7. NASACORT [Concomitant]
  8. CALCIUM [Concomitant]
  9. LOVAZA [Concomitant]
  10. MULTI-VITAMIN [Concomitant]

REACTIONS (10)
  - ACCIDENT [None]
  - CARPAL TUNNEL SYNDROME [None]
  - FALL [None]
  - IMPAIRED DRIVING ABILITY [None]
  - IMPAIRED HEALING [None]
  - MONARTHRITIS [None]
  - OSTEOPOROSIS [None]
  - PELVIC FRACTURE [None]
  - SURGERY [None]
  - UPPER LIMB FRACTURE [None]
